FAERS Safety Report 22229014 (Version 1)
Quarter: 2023Q2

REPORT INFORMATION
  Report Type: Spontaneous
  Country: US (occurrence: US)
  Receive Date: 20230419
  Receipt Date: 20230419
  Transmission Date: 20230722
  Serious: No
  Sender: FDA-Public Use
  Company Number: US-SCILEX PHARMACEUTICALS INC.-2023SCX00009

PATIENT
  Age: 67 Year
  Sex: Female
  Weight: 117.91 kg

DRUGS (8)
  1. ZTLIDO [Suspect]
     Active Substance: LIDOCAINE
     Indication: Back pain
     Dosage: 1 PATCH, 1X/DAY
     Route: 061
     Dates: start: 202301, end: 202301
  2. ZTLIDO [Suspect]
     Active Substance: LIDOCAINE
     Dosage: 1 PATCH, 1X/DAY
     Route: 061
     Dates: start: 202302
  3. UNSPECIFIED INGREDIENT [Concomitant]
     Active Substance: UNSPECIFIED INGREDIENT
  4. VITAMIN D NOS [Concomitant]
     Active Substance: VITAMIN D NOS
  5. ZINC [Concomitant]
     Active Substance: ZINC
  6. LUNG CLEAR HERBAL MEDICINE [Concomitant]
  7. CURCUMIN [Concomitant]
     Active Substance: CURCUMIN
  8. SOME OTHER THINGS [Concomitant]

REACTIONS (4)
  - Rash pruritic [Recovering/Resolving]
  - Scab [Unknown]
  - Reaction to excipient [Unknown]
  - Drug ineffective for unapproved indication [Not Recovered/Not Resolved]

NARRATIVE: CASE EVENT DATE: 20230101
